FAERS Safety Report 24373870 (Version 1)
Quarter: 2024Q3

REPORT INFORMATION
  Report Type: Spontaneous
  Country: US (occurrence: None)
  Receive Date: 20240927
  Receipt Date: 20240927
  Transmission Date: 20241017
  Serious: Yes (Other)
  Sender: Public
  Company Number: None

PATIENT
  Age: 63 Year
  Sex: Male

DRUGS (1)
  1. SILDENAFIL [Suspect]
     Active Substance: SILDENAFIL
     Indication: Erectile dysfunction
     Dosage: 100 MG/MG DAILY ORAL ?
     Route: 048
     Dates: start: 20240926, end: 20240926

REACTIONS (3)
  - Erectile dysfunction [None]
  - Therapeutic product effect decreased [None]
  - Genital hypoaesthesia [None]

NARRATIVE: CASE EVENT DATE: 20240926
